APPROVED DRUG PRODUCT: AVANDAMET
Active Ingredient: METFORMIN HYDROCHLORIDE; ROSIGLITAZONE MALEATE
Strength: 1GM;EQ 2MG BASE **Federal Register determination that product was not discontinued or withdrawn for safety or effectiveness reasons**
Dosage Form/Route: TABLET;ORAL
Application: N021410 | Product #004
Applicant: SB PHARMCO PUERTO RICO INC
Approved: Aug 25, 2003 | RLD: Yes | RS: No | Type: DISCN